FAERS Safety Report 6846625-5 (Version None)
Quarter: 2010Q3

REPORT INFORMATION
  Report Type: 
  Country: None (occurrence: None)
  Receive Date: 20100715
  Receipt Date: 20070919
  Transmission Date: 20110219
  Serious: No
  Sender: FDA-Public Use
  Company Number: US-PFIZER INC-2007079273

PATIENT
  Age: 66 Year
  Sex: Female
  Weight: 47.727 kg

DRUGS (4)
  1. CHANTIX [Suspect]
     Indication: SMOKING CESSATION THERAPY
     Route: 048
     Dates: start: 20070101
  2. EVISTA [Concomitant]
  3. ACETYLSALICYLIC ACID [Concomitant]
  4. VITAMINS [Concomitant]

REACTIONS (5)
  - AFFECT LABILITY [None]
  - ANXIETY [None]
  - BACK PAIN [None]
  - DEPRESSION [None]
  - INTERVERTEBRAL DISC PROTRUSION [None]
